FAERS Safety Report 8960936 (Version 1)
Quarter: 2012Q4

REPORT INFORMATION
  Report Type: 
  Country: US (occurrence: US)
  Receive Date: 20121213
  Receipt Date: 20121213
  Transmission Date: 20130627
  Serious: No
  Sender: FDA-Public Use
  Company Number: US-BAYER-2012-124386

PATIENT
  Sex: Female
  Weight: 74.83 kg

DRUGS (11)
  1. BETASERON [Suspect]
     Indication: RELAPSING-REMITTING MULTIPLE SCLEROSIS
  2. AMPYRA [Concomitant]
  3. ASA [Concomitant]
  4. CALCIUM +VIT D [Concomitant]
  5. CELEBREX [Concomitant]
  6. DULCOLAX [BISACODYL] [Concomitant]
  7. HYZAAR [Concomitant]
  8. METANX [Concomitant]
  9. TYLENOL [PARACETAMOL] [Concomitant]
  10. VESICARE [Concomitant]
  11. VITAMIN C [Concomitant]

REACTIONS (1)
  - Haematocrit decreased [None]
